FAERS Safety Report 4316800-2 (Version None)
Quarter: 2004Q1

REPORT INFORMATION
  Report Type: 
  Country: None (occurrence: None)
  Receive Date: 20040311
  Receipt Date: 20040223
  Transmission Date: 20041129
  Serious: Yes (Hospitalization)
  Sender: FDA-Public Use
  Company Number: UK059708

PATIENT
  Age: 15 Year
  Sex: Female

DRUGS (2)
  1. NEUPOGEN [Suspect]
     Indication: CHEMOTHERAPY
     Dosage: 300 MCG, PER CHEMO REGIMEN, SC
     Route: 058
     Dates: start: 20030101
  2. IRINOTECAN [Suspect]
     Dosage: 26 MG, PER CHEMO REGIMEN, IV
     Route: 042
     Dates: start: 20030101

REACTIONS (3)
  - ANOREXIA [None]
  - DEHYDRATION [None]
  - DENTAL CARIES [None]
